FAERS Safety Report 24837170 (Version 1)
Quarter: 2025Q1

REPORT INFORMATION
  Report Type: Spontaneous
  Country: DE (occurrence: DE)
  Receive Date: 20250113
  Receipt Date: 20250113
  Transmission Date: 20250408
  Serious: Yes (Hospitalization, Other)
  Sender: Kenvue
  Company Number: DE-KENVUE CANADA INC.-20250101982

PATIENT

DRUGS (1)
  1. MENS ROGAINE [Suspect]
     Active Substance: MINOXIDIL
     Indication: Alopecia
     Route: 065
     Dates: end: 2022

REACTIONS (2)
  - Intraocular pressure increased [Unknown]
  - IIIrd nerve paralysis [Unknown]

NARRATIVE: CASE EVENT DATE: 20220101
